FAERS Safety Report 21975772 (Version 2)
Quarter: 2023Q1

REPORT INFORMATION
  Report Type: Report from Study
  Country: US (occurrence: US)
  Receive Date: 20230210
  Receipt Date: 20230212
  Transmission Date: 20230417
  Serious: Yes (Death, Hospitalization)
  Sender: FDA-Public Use
  Company Number: US-ABBVIE-4283307

PATIENT
  Sex: Male

DRUGS (3)
  1. VENCLEXTA [Suspect]
     Active Substance: VENETOCLAX
     Indication: Refractory anaemia with an excess of blasts
     Route: 048
  2. VENCLEXTA [Suspect]
     Active Substance: VENETOCLAX
     Indication: Refractory anaemia with an excess of blasts
     Dosage: TAKE 4 TABLET(S) BY MOUTH DAILY
     Route: 048
  3. ALLOPURINOL [Concomitant]
     Active Substance: ALLOPURINOL
     Indication: Product used for unknown indication

REACTIONS (4)
  - Organ failure [Fatal]
  - Abdominal discomfort [Unknown]
  - Off label use [Unknown]
  - Renal failure [Fatal]
